FAERS Safety Report 25152494 (Version 1)
Quarter: 2025Q2

REPORT INFORMATION
  Report Type: Spontaneous
  Country: DE (occurrence: DE)
  Receive Date: 20250402
  Receipt Date: 20250402
  Transmission Date: 20250717
  Serious: Yes (Hospitalization)
  Sender: BLUEPRINT MEDICINES
  Company Number: DE-Blueprint Medicines Corporation-2025-AER-00608

PATIENT

DRUGS (1)
  1. AVAPRITINIB [Suspect]
     Active Substance: AVAPRITINIB
     Indication: Advanced systemic mastocytosis
     Route: 065

REACTIONS (1)
  - Drug hypersensitivity [Unknown]
